FAERS Safety Report 15473182 (Version 1)
Quarter: 2018Q4

REPORT INFORMATION
  Report Type: Spontaneous
  Country: JP (occurrence: JP)
  Receive Date: 20181008
  Receipt Date: 20181008
  Transmission Date: 20190205
  Serious: Yes (Hospitalization)
  Sender: FDA-Public Use
  Company Number: JP-TEVA-2018-JP-002546J

PATIENT
  Age: 59 Year
  Sex: Female

DRUGS (2)
  1. CERCINE [Suspect]
     Active Substance: DIAZEPAM
     Dosage: 5 MILLIGRAM DAILY;
     Route: 042
     Dates: start: 20180608, end: 20180608
  2. CERCINE [Suspect]
     Active Substance: DIAZEPAM
     Indication: SEDATION
     Route: 065
     Dates: start: 2016

REACTIONS (1)
  - Urticaria [Recovered/Resolved]

NARRATIVE: CASE EVENT DATE: 20180608
